FAERS Safety Report 11864270 (Version 4)
Quarter: 2016Q4

REPORT INFORMATION
  Report Type: Report from Study
  Country: DE (occurrence: DE)
  Receive Date: 20151223
  Receipt Date: 20161128
  Transmission Date: 20170206
  Serious: Yes (Life-Threatening, Hospitalization)
  Sender: FDA-Public Use
  Company Number: DE-PFIZER INC-2015455061

PATIENT
  Age: 64 Year
  Sex: Female
  Weight: 80 kg

DRUGS (12)
  1. CYTARABINE. [Suspect]
     Active Substance: CYTARABINE
     Indication: MYELOID LEUKAEMIA
     Dosage: 190 MG, DAILY
     Dates: start: 20151021, end: 20151027
  2. MERONEM [Concomitant]
     Active Substance: MEROPENEM
     Indication: INFECTION
     Dosage: 3 G, DAILY
     Route: 042
     Dates: start: 20151029, end: 20151105
  3. VANCOMYCIN [Concomitant]
     Active Substance: VANCOMYCIN
     Indication: INFECTION
     Dosage: 2 G, DAILY
     Route: 042
     Dates: start: 20151029, end: 20151105
  4. TYGACIL [Concomitant]
     Active Substance: TIGECYCLINE
     Dosage: 50 MG, DAILY
     Route: 042
     Dates: start: 20151106, end: 20151113
  5. IDARUBICIN HCL [Suspect]
     Active Substance: IDARUBICIN HYDROCHLORIDE
     Indication: MYELOID LEUKAEMIA
     Dosage: 22.8 MG DAILY, ON DAY 1 AND DAY 3 OF THE CYCLE
     Dates: start: 20151021, end: 20151023
  6. MAXIPIME [Concomitant]
     Active Substance: CEFEPIME HYDROCHLORIDE
     Indication: INFECTION
     Dosage: 6 G, DAILY
     Route: 042
     Dates: start: 20151105, end: 20151115
  7. ETOPOSIDE. [Suspect]
     Active Substance: ETOPOSIDE
     Indication: MYELOID LEUKAEMIA
     Dosage: 190 MG DAILY, ON DAY 1 AND DAY 3 OF THE CYCLE
     Dates: start: 20151021, end: 20151023
  8. TYGACIL [Concomitant]
     Active Substance: TIGECYCLINE
     Indication: INFECTION
     Dosage: 100 MG, DAILY
     Route: 042
     Dates: start: 20151105, end: 20151105
  9. GEMTUZUMAB OZOGAMICIN [Suspect]
     Active Substance: GEMTUZUMAB OZOGAMICIN
     Indication: MYELOID LEUKAEMIA
     Dosage: 5.7 MG, DAILY
     Dates: start: 20151021
  10. ATRA [Suspect]
     Active Substance: TRETINOIN
     Indication: MYELOID LEUKAEMIA
     Dosage: 85 MG, DAILY
     Dates: start: 20151026, end: 20151028
  11. ATRA [Suspect]
     Active Substance: TRETINOIN
     Dosage: 30 MG, DAILY
     Dates: start: 20151029, end: 20151110
  12. TAVANIC [Concomitant]
     Active Substance: LEVOFLOXACIN
     Indication: INFECTION
     Dosage: 500 MG, DAILY
     Route: 042
     Dates: start: 20151105, end: 20151112

REACTIONS (1)
  - Febrile neutropenia [Recovered/Resolved]

NARRATIVE: CASE EVENT DATE: 20151107
